FAERS Safety Report 17968273 (Version 6)
Quarter: 2025Q3

REPORT INFORMATION
  Report Type: Spontaneous
  Country: EU (occurrence: EU)
  Receive Date: 20200701
  Receipt Date: 20250819
  Transmission Date: 20251021
  Serious: Yes (Other)
  Sender: MYLAN
  Company Number: EU-ROCHE-2619318

PATIENT
  Age: 53 Year
  Sex: Female

DRUGS (10)
  1. TRAMADOL [Suspect]
     Active Substance: TRAMADOL
     Indication: Chemical submission
  2. LORAZEPAM [Suspect]
     Active Substance: LORAZEPAM
     Indication: Chemical submission
  3. BROMAZEPAM [Suspect]
     Active Substance: BROMAZEPAM
     Indication: Chemical submission
     Dosage: 3 DOSAGE FORM, QD, 3 TABLETS IN THE EVENING  3 TABLETS IN THE EVENING
  4. XANAX [Suspect]
     Active Substance: ALPRAZOLAM
     Indication: Chemical submission
  5. VALIUM [Suspect]
     Active Substance: DIAZEPAM
     Indication: Chemical submission
  6. CYAMEMAZINE [Suspect]
     Active Substance: CYAMEMAZINE
     Indication: Chemical submission
  7. IMOVANE [Suspect]
     Active Substance: ZOPICLONE
     Indication: Chemical submission
  8. NORDAZEPAM [Suspect]
     Active Substance: NORDAZEPAM
     Indication: Chemical submission
  9. BROMAZEPAM [Suspect]
     Active Substance: BROMAZEPAM
     Indication: Chemical submission
     Dosage: 3 TABLETS IN THE EVENING
  10. OXAZEPAM [Suspect]
     Active Substance: OXAZEPAM
     Indication: Chemical submission

REACTIONS (18)
  - Poisoning [Recovered/Resolved]
  - Cholinergic syndrome [Recovered/Resolved]
  - Salivary hypersecretion [Recovered/Resolved]
  - Malaise [Not Recovered/Not Resolved]
  - Drug level increased [Unknown]
  - Weight decreased [Recovered/Resolved]
  - Vomiting [Recovered/Resolved]
  - Suicidal ideation [Recovered/Resolved]
  - Major depression [Recovered/Resolved]
  - Nausea [Recovered/Resolved]
  - Fatigue [Not Recovered/Not Resolved]
  - Chemical submission [Unknown]
  - Wrong rate [Unknown]
  - Incorrect product administration duration [Unknown]
  - Maternal exposure timing unspecified [Unknown]
  - Maternal exposure during pregnancy [Unknown]
  - Product use in unapproved indication [Unknown]
  - Off label use [Unknown]

NARRATIVE: CASE EVENT DATE: 20200101
